FAERS Safety Report 8590329-8 (Version None)
Quarter: 2012Q3

REPORT INFORMATION
  Report Type: 
  Country: None (occurrence: None)
  Receive Date: 20120813
  Receipt Date: 20120806
  Transmission Date: 20120928
  Serious: Yes (Death, Hospitalization)
  Sender: FDA-Public Use
  Company Number: US-JNJFOC-20120613678

PATIENT
  Sex: Male

DRUGS (4)
  1. ZYTIGA [Suspect]
     Indication: PROSTATE CANCER METASTATIC
     Route: 048
     Dates: start: 20111214, end: 20120524
  2. CALCIUM [Concomitant]
     Route: 065
  3. POTASSIUM [Concomitant]
     Route: 065
  4. PREDNISONE TAB [Concomitant]
     Route: 065

REACTIONS (5)
  - FATIGUE [None]
  - PNEUMONIA [None]
  - ADVERSE EVENT [None]
  - DRUG INEFFECTIVE [None]
  - DYSPNOEA [None]
